FAERS Safety Report 17031574 (Version 1)
Quarter: 2019Q4

REPORT INFORMATION
  Report Type: Report from Study
  Country: US (occurrence: US)
  Receive Date: 20191114
  Receipt Date: 20191114
  Transmission Date: 20200122
  Serious: Yes (Other)
  Sender: FDA-Public Use
  Company Number: US-PFIZER INC-2019490895

PATIENT
  Age: 46 Year
  Sex: Female

DRUGS (2)
  1. LETROZOLE. [Concomitant]
     Active Substance: LETROZOLE
     Dosage: UNK, DAILY
  2. IBRANCE [Suspect]
     Active Substance: PALBOCICLIB
     Indication: BREAST CANCER FEMALE
     Dosage: 100 MG, CYCLIC [DAILY FOR 21 DAYS AND OFF 7 DAYS]
     Route: 048
     Dates: start: 20180924

REACTIONS (3)
  - Ulcer haemorrhage [Unknown]
  - Nausea [Unknown]
  - Fatigue [Unknown]
